FAERS Safety Report 18897498 (Version 2)
Quarter: 2021Q1

REPORT INFORMATION
  Report Type: Spontaneous
  Country: US (occurrence: MK)
  Receive Date: 20210215
  Receipt Date: 20210226
  Transmission Date: 20210420
  Serious: No
  Sender: FDA-Public Use
  Company Number: MK-BEH-2021128358

PATIENT
  Sex: Female

DRUGS (1)
  1. HIZENTRA [Suspect]
     Active Substance: HUMAN IMMUNOGLOBULIN G
     Indication: IMMUNE-MEDIATED MYOSITIS
     Route: 058

REACTIONS (5)
  - Off label use [Unknown]
  - No adverse event [Unknown]
  - Therapy cessation [Unknown]
  - Product availability issue [Unknown]
  - Poor venous access [Unknown]
